FAERS Safety Report 5427844-1 (Version None)
Quarter: 2007Q3

REPORT INFORMATION
  Report Type: 
  Country: None (occurrence: None)
  Receive Date: 20070823
  Receipt Date: 20070810
  Transmission Date: 20080115
  Serious: Yes (Life-Threatening, Hospitalization)
  Sender: FDA-Public Use
  Company Number: 238309K06USA

PATIENT
  Age: 63 Year
  Sex: Female

DRUGS (2)
  1. REBIF [Suspect]
     Indication: MULTIPLE SCLEROSIS
     Dosage: 44 MCG, 3 IN 1 WEEKS, SUBCUTANEOUS
     Route: 058
     Dates: start: 20061030, end: 20061223
  2. REBIF [Suspect]
     Dosage: 3 IN 1 WEEKS, SUBCUTANEOUS
     Route: 058
     Dates: start: 20070101

REACTIONS (9)
  - ABASIA [None]
  - APHASIA [None]
  - COMA [None]
  - DEHYDRATION [None]
  - DRUG TOXICITY [None]
  - DYSPHAGIA [None]
  - INCOHERENT [None]
  - MULTIPLE SCLEROSIS RELAPSE [None]
  - ORAL INTAKE REDUCED [None]
